FAERS Safety Report 20616263 (Version 1)
Quarter: 2022Q1

REPORT INFORMATION
  Report Type: Spontaneous
  Country: CN (occurrence: CN)
  Receive Date: 20220321
  Receipt Date: 20220321
  Transmission Date: 20220424
  Serious: Yes (Other)
  Sender: FDA-Public Use
  Company Number: CN-BAXTER-2022BAX006060

PATIENT
  Age: 50 Year
  Sex: Female

DRUGS (13)
  1. CYCLOPHOSPHAMIDE [Suspect]
     Active Substance: CYCLOPHOSPHAMIDE
     Indication: Breast cancer female
     Dosage: FIRST CYCLE OF CHEMOTHERAPY, CYCLOPHOSPHAMIDE FOR INJECTION (ENDOXAN CTX) + NS
     Route: 042
  2. CYCLOPHOSPHAMIDE [Suspect]
     Active Substance: CYCLOPHOSPHAMIDE
     Dosage: SECOND CYCLE OF CHEMOTHERAPY, CYCLOPHOSPHAMIDE FOR INJECTION (ENDOXAN CTX) 930 MG + NS 50 ML
     Route: 042
     Dates: start: 20220209, end: 20220209
  3. CYCLOPHOSPHAMIDE [Suspect]
     Active Substance: CYCLOPHOSPHAMIDE
     Dosage: DOSE REINTRODUCED, CYCLOPHOSPHAMIDE + NS
     Route: 042
  4. SODIUM CHLORIDE [Suspect]
     Active Substance: SODIUM CHLORIDE
     Indication: Medication dilution
     Dosage: FIRST CYCLE OF CHEMOTHERAPY, CYCLOPHOSPHAMIDE FOR INJECTION + NS
     Route: 042
  5. SODIUM CHLORIDE [Suspect]
     Active Substance: SODIUM CHLORIDE
     Dosage: SECOND CYCLE OF CHEMOTHERAPY, CYCLOPHOSPHAMIDE FOR INJECTION 930 MG + NS 50 ML
     Route: 042
     Dates: start: 20220209, end: 20220209
  6. SODIUM CHLORIDE [Suspect]
     Active Substance: SODIUM CHLORIDE
     Dosage: DOSE REINTRODUCED, CYCLOPHOSPHAMIDE FOR INJECTION + NS
     Route: 042
  7. SODIUM CHLORIDE [Suspect]
     Active Substance: SODIUM CHLORIDE
     Dosage: FIRST CYCLE OF CHEMOTHERAPY, EPIRUBICIN HYDROCHLORIDE FOR INJECTION + NS
     Route: 041
  8. SODIUM CHLORIDE [Suspect]
     Active Substance: SODIUM CHLORIDE
     Dosage: SECOND CYCLE OF CHEMOTHERAPY, EPIRUBICIN HYDROCHLORIDE FOR INJECTION 133 MG + NS 100 ML
     Route: 041
     Dates: start: 20220209, end: 20220209
  9. SODIUM CHLORIDE [Suspect]
     Active Substance: SODIUM CHLORIDE
     Dosage: DOSE REINTRODUCED, EPIRUBICIN HYDROCHLORIDE FOR INJECTION + NS
     Route: 041
  10. EPIRUBICIN HYDROCHLORIDE [Suspect]
     Active Substance: EPIRUBICIN HYDROCHLORIDE
     Indication: Breast cancer female
     Dosage: FIRST CYCLE OF CHEMOTHERAPY,  EPIRUBICIN HYDROCHLORIDE FOR INJECTION (AIDASHENG) + NS
     Route: 041
  11. EPIRUBICIN HYDROCHLORIDE [Suspect]
     Active Substance: EPIRUBICIN HYDROCHLORIDE
     Dosage: SECOND CYCLE OF CHEMOTHERAPY, EPIRUBICIN HYDROCHLORIDE FOR INJECTION 133 MG + NS 100 ML
     Route: 041
     Dates: start: 20220209, end: 20220209
  12. EPIRUBICIN HYDROCHLORIDE [Suspect]
     Active Substance: EPIRUBICIN HYDROCHLORIDE
     Dosage: DOSE REINTRODUCED, EPIRUBICIN HYDROCHLORIDE FOR INJECTION + NS
     Route: 041
  13. Aiduo [Concomitant]
     Indication: Product used for unknown indication
     Dosage: ON THE THIRD DAY.
     Route: 058

REACTIONS (2)
  - White blood cell count decreased [Recovered/Resolved]
  - Agranulocytosis [Recovered/Resolved]

NARRATIVE: CASE EVENT DATE: 20220216
